FAERS Safety Report 15661005 (Version 1)
Quarter: 2018Q4

REPORT INFORMATION
  Report Type: Spontaneous
  Country: US (occurrence: US)
  Receive Date: 20181127
  Receipt Date: 20181127
  Transmission Date: 20190205
  Serious: No
  Sender: FDA-Public Use
  Company Number: US-KYOWAKIRIN-2018BKK008177

PATIENT

DRUGS (1)
  1. POTELIGEO [Suspect]
     Active Substance: MOGAMULIZUMAB-KPKC
     Indication: PERIPHERAL T-CELL LYMPHOMA UNSPECIFIED
     Dosage: 70 MG, IV PIGGYBACK
     Route: 042
     Dates: start: 20181011, end: 20181011

REACTIONS (7)
  - Productive cough [Unknown]
  - Upper respiratory tract infection [Unknown]
  - Product use in unapproved indication [Recovered/Resolved]
  - Chills [Unknown]
  - Fatigue [Unknown]
  - Pyrexia [Unknown]
  - Syncope [Unknown]

NARRATIVE: CASE EVENT DATE: 20181011
